FAERS Safety Report 10013604 (Version 2)
Quarter: 2014Q1

REPORT INFORMATION
  Report Type: Spontaneous
  Country: IL (occurrence: IL)
  Receive Date: 20140315
  Receipt Date: 20140324
  Transmission Date: 20141002
  Serious: Yes (Disabling)
  Sender: FDA-Public Use
  Company Number: IL-ROCHE-1363657

PATIENT
  Sex: Female

DRUGS (23)
  1. ACTEMRA [Suspect]
     Indication: RHEUMATOID ARTHRITIS
     Route: 042
     Dates: start: 20101125
  2. METHOTREXATE [Concomitant]
     Route: 065
     Dates: start: 200808, end: 20120319
  3. METHOTREXATE [Concomitant]
     Route: 065
     Dates: start: 20120320, end: 20120704
  4. METHOTREXATE [Concomitant]
     Route: 065
     Dates: start: 20120705, end: 20120813
  5. METHOTREXATE [Concomitant]
     Route: 065
     Dates: start: 20120814, end: 20120905
  6. METHOTREXATE [Concomitant]
     Route: 065
     Dates: start: 20120906, end: 20121001
  7. METHOTREXATE [Concomitant]
     Route: 065
     Dates: start: 20121002, end: 20121231
  8. METHOTREXATE [Concomitant]
     Route: 065
     Dates: start: 20130101
  9. PREDNISONE [Concomitant]
     Route: 065
     Dates: start: 20101026, end: 20110307
  10. PREDNISONE [Concomitant]
     Route: 065
     Dates: start: 20110308, end: 20110405
  11. PREDNISONE [Concomitant]
     Route: 065
     Dates: start: 20110406, end: 20110628
  12. ASPIRIN [Concomitant]
     Route: 065
     Dates: start: 20110811, end: 20120704
  13. ASPIRIN [Concomitant]
     Route: 065
     Dates: start: 20120705
  14. OMEPRADEX [Concomitant]
     Route: 065
     Dates: start: 20110818
  15. ATORVASTATIN [Concomitant]
     Route: 065
     Dates: start: 20121127
  16. FOLIC ACID [Concomitant]
     Route: 065
     Dates: start: 20080803
  17. FOSALAN [Concomitant]
     Route: 065
     Dates: start: 2008
  18. SIMOVIL [Concomitant]
     Route: 065
     Dates: start: 2010, end: 20110530
  19. SIMOVIL [Concomitant]
     Route: 065
     Dates: start: 20110531, end: 20121126
  20. TRAMADEX [Concomitant]
     Route: 065
     Dates: start: 20101026
  21. LEUCOVORIN [Concomitant]
     Route: 065
     Dates: start: 20080803
  22. PHENERGAN [Concomitant]
     Route: 065
     Dates: start: 20110113, end: 20110113
  23. LITORVA [Concomitant]
     Route: 065
     Dates: start: 20121204

REACTIONS (1)
  - Tendon rupture [Not Recovered/Not Resolved]
